FAERS Safety Report 5304645-6 (Version None)
Quarter: 2007Q2

REPORT INFORMATION
  Report Type: 
  Country: None (occurrence: None)
  Receive Date: 20070423
  Receipt Date: 20070416
  Transmission Date: 20071010
  Serious: Yes (Other)
  Sender: FDA-Public Use
  Company Number: US-GENENTECH-234675

PATIENT
  Sex: Female
  Weight: 113.6 kg

DRUGS (7)
  1. OMALIZUMAB [Suspect]
     Dosage: 300 MG, Q2W
     Route: 058
     Dates: start: 20060505, end: 20061219
  2. ALBUTEROL [Concomitant]
     Indication: ASTHMA
  3. SUDAFED 12 HOUR [Concomitant]
     Indication: SINUS DISORDER
  4. TYLENOL [Concomitant]
     Indication: HEADACHE
  5. CLARINEX [Concomitant]
     Indication: HYPERSENSITIVITY
  6. ADVAIR DISKUS 100/50 [Concomitant]
     Indication: ASTHMA
     Dosage: UNK, BID
  7. FLONASE [Suspect]
     Indication: ASTHMA

REACTIONS (2)
  - ABORTION SPONTANEOUS [None]
  - DRUG EXPOSURE DURING PREGNANCY [None]
